FAERS Safety Report 5137253-0 (Version None)
Quarter: 2006Q4

REPORT INFORMATION
  Report Type: 
  Country: None (occurrence: None)
  Receive Date: 20061030
  Receipt Date: 20050927
  Transmission Date: 20070319
  Serious: No
  Sender: FDA-Public Use
  Company Number: US-GLAXOSMITHKLINE-A0576082A

PATIENT
  Age: 17 Year
  Sex: Female

DRUGS (5)
  1. ADVAIR HFA [Suspect]
     Indication: ASTHMA
     Dosage: 1PUFF TWICE PER DAY
     Route: 055
     Dates: start: 20050101, end: 20050901
  2. ALBUTEROL [Concomitant]
     Indication: ASTHMA
     Dosage: 2PUFF FOUR TIMES PER DAY
     Route: 055
     Dates: start: 20030424
  3. ALLEGRA [Concomitant]
     Dosage: 60MG TWICE PER DAY
     Route: 048
     Dates: start: 20030209
  4. RELAFEN [Concomitant]
     Dosage: 500MG TWICE PER DAY
     Route: 048
     Dates: start: 20050711, end: 20050721
  5. SKELAXIN [Concomitant]
     Dosage: 800MG FOUR TIMES PER DAY
     Route: 048
     Dates: start: 20050711, end: 20050718

REACTIONS (4)
  - DRUG INEFFECTIVE [None]
  - DYSPNOEA [None]
  - PALPITATIONS [None]
  - PHARMACEUTICAL PRODUCT COMPLAINT [None]
